FAERS Safety Report 23125993 (Version 1)
Quarter: 2023Q4

REPORT INFORMATION
  Report Type: Spontaneous
  Country: US (occurrence: None)
  Receive Date: 20231030
  Receipt Date: 20231030
  Transmission Date: 20240110
  Serious: Yes (Other)
  Sender: FDA-Public Use
  Company Number: None

PATIENT
  Age: 69 Year
  Sex: Female
  Weight: 119.25 kg

DRUGS (5)
  1. OZEMPIC [Suspect]
     Active Substance: SEMAGLUTIDE
     Indication: Blood glucose increased
     Dosage: OTHER FREQUENCY : WEEKLY INJECTION;?OTHER ROUTE : I AM LOST WITH THIS QUESTION;?
     Route: 050
     Dates: start: 20230512, end: 20231026
  2. OZEMPIC [Suspect]
     Active Substance: SEMAGLUTIDE
     Indication: Weight decreased
  3. METFORMIN HYDROCHLORIDE [Concomitant]
     Active Substance: METFORMIN HYDROCHLORIDE
  4. CRESTOR [Concomitant]
     Active Substance: ROSUVASTATIN CALCIUM
  5. ASPIRIN [Concomitant]
     Active Substance: ASPIRIN

REACTIONS (8)
  - Lethargy [None]
  - Asthenia [None]
  - Depression [None]
  - Chest pain [None]
  - Dyspepsia [None]
  - Constipation [None]
  - Weight increased [None]
  - Mental status changes [None]

NARRATIVE: CASE EVENT DATE: 20231030
